FAERS Safety Report 10595800 (Version 2)
Quarter: 2014Q4

REPORT INFORMATION
  Report Type: Spontaneous
  Country: ES (occurrence: ES)
  Receive Date: 20141120
  Receipt Date: 20141126
  Transmission Date: 20150529
  Serious: No
  Sender: FDA-Public Use
  Company Number: US-ASTRAZENECA-2014SE87695

PATIENT
  Age: 42 Year
  Sex: Male

DRUGS (1)
  1. VIMOVO [Suspect]
     Active Substance: ESOMEPRAZOLE MAGNESIUM\NAPROXEN
     Indication: BACK PAIN
     Dosage: INTERMITTENTLY FOR 24 HOURS
     Route: 048

REACTIONS (2)
  - Therapy cessation [Unknown]
  - Pain [Unknown]
